FAERS Safety Report 16860744 (Version 1)
Quarter: 2019Q3

REPORT INFORMATION
  Report Type: Spontaneous
  Country: SG (occurrence: SG)
  Receive Date: 20190927
  Receipt Date: 20190927
  Transmission Date: 20191005
  Serious: Yes (Hospitalization, Other)
  Sender: FDA-Public Use
  Company Number: PHHY2019SG224050

PATIENT
  Age: 59 Year
  Sex: Male

DRUGS (1)
  1. PREDNISOLONE. [Suspect]
     Active Substance: PREDNISOLONE
     Indication: GLOMERULONEPHRITIS
     Dosage: 60 MG, QD
     Route: 065

REACTIONS (6)
  - Pneumonitis [Unknown]
  - Brain abscess [Unknown]
  - Subcutaneous abscess [Recovered/Resolved]
  - Muscle abscess [Recovered/Resolved]
  - Nocardiosis [Unknown]
  - Lung abscess [Unknown]
